FAERS Safety Report 5497043-6 (Version None)
Quarter: 2007Q4

REPORT INFORMATION
  Report Type: 
  Country: None (occurrence: None)
  Receive Date: 20071023
  Receipt Date: 20070928
  Transmission Date: 20080405
  Serious: Yes (Other)
  Sender: FDA-Public Use
  Company Number: 2007AP001150

PATIENT
  Age: 42 Year
  Sex: Male

DRUGS (10)
  1. FLUCONAZOLE [Suspect]
     Indication: CANDIDIASIS
     Dosage: QD
  2. WARFARIN SODIUM [Suspect]
     Indication: AORTIC VALVE REPLACEMENT
     Dosage: 5.5 MG; QD;  3 MG; QOD; 3.5 MG; QOD;  11 MG; QD
  3. CITALOPRAM (CITALOPRAM) [Concomitant]
  4. CLONAZEPAM [Concomitant]
  5. ZOPICLONE (ZOPICLONE) [Concomitant]
  6. PANTOPRAZOLE SODIUM [Concomitant]
  7. SULFAMETHOXAZOLE [Concomitant]
  8. TRIMETHOPRIM [Concomitant]
  9. ZIDOVUDINE [Concomitant]
  10. LAMIVUDINE [Concomitant]

REACTIONS (11)
  - ANTICOAGULATION DRUG LEVEL BELOW THERAPEUTIC [None]
  - CANDIDIASIS [None]
  - DEPRESSION [None]
  - DRUG INTERACTION [None]
  - HIV TEST POSITIVE [None]
  - INCORRECT DOSE ADMINISTERED [None]
  - INCORRECT DRUG ADMINISTRATION DURATION [None]
  - INTERNATIONAL NORMALISED RATIO DECREASED [None]
  - INTERNATIONAL NORMALISED RATIO INCREASED [None]
  - PNEUMOCYSTIS JIROVECI PNEUMONIA [None]
  - TREATMENT NONCOMPLIANCE [None]
